FAERS Safety Report 21986885 (Version 1)
Quarter: 2023Q1

REPORT INFORMATION
  Report Type: Other
  Country: CA (occurrence: CA)
  Receive Date: 20230213
  Receipt Date: 20230213
  Transmission Date: 20230417
  Serious: Yes (Death, Other)
  Sender: FDA-Public Use
  Company Number: CA-PFIZER INC-202300059040

PATIENT

DRUGS (7)
  1. AZITHROMYCIN [Suspect]
     Active Substance: AZITHROMYCIN
     Dosage: UNK
     Route: 064
  2. DEXTROSE [Suspect]
     Active Substance: DEXTROSE
     Dosage: UNK
     Route: 064
  3. AMPICILLIN [Suspect]
     Active Substance: AMPICILLIN
     Dosage: UNK
     Route: 064
  4. ATOSIBAN [Suspect]
     Active Substance: ATOSIBAN
     Route: 064
  5. BETAMETHASONE [Suspect]
     Active Substance: BETAMETHASONE
     Dosage: UNK
     Route: 064
  6. GENTAMICIN [Suspect]
     Active Substance: GENTAMICIN
     Dosage: UNK
     Route: 064
  7. MAGNESIUM SULFATE [Suspect]
     Active Substance: MAGNESIUM SULFATE
     Dosage: UNK
     Route: 064

REACTIONS (3)
  - Death neonatal [Fatal]
  - Foetal exposure during pregnancy [Fatal]
  - Premature baby [Fatal]
